FAERS Safety Report 11560059 (Version 1)
Quarter: 2015Q3

REPORT INFORMATION
  Report Type: Report from Study
  Country: JP (occurrence: JP)
  Receive Date: 20150928
  Receipt Date: 20150928
  Transmission Date: 20151125
  Serious: Yes (Death)
  Sender: FDA-Public Use
  Company Number: JP-SA-2015SA145884

PATIENT

DRUGS (4)
  1. ISONIAZID. [Suspect]
     Active Substance: ISONIAZID
     Indication: TUBERCULOSIS
     Dosage: 7DAYS/WEEK, MAXIMUM DOSE-300MG/DAY
     Route: 065
  2. PYRAZINAMIDE. [Suspect]
     Active Substance: PYRAZINAMIDE
     Indication: TUBERCULOSIS
     Dosage: 7 DAYS/WEEK, MAXI?MUM DOSE 1,500 MG/DAY)
     Route: 065
  3. RIFAMPICIN [Suspect]
     Active Substance: RIFAMPIN
     Indication: TUBERCULOSIS
     Dosage: 7DAYS/WEEK, MAXIMUM DOSE-600MG/DAY
     Route: 065
  4. ETHAMBUTOL [Suspect]
     Active Substance: ETHAMBUTOL HYDROCHLORIDE
     Indication: TUBERCULOSIS
     Dosage: (15-20 MG/KG/ DAY, 7 DAYS/WEEK, MAXIMUM DOSE 1,000 MG/DAY)
     Route: 065

REACTIONS (1)
  - Drug-induced liver injury [Fatal]
